FAERS Safety Report 5682029-9 (Version None)
Quarter: 2008Q1

REPORT INFORMATION
  Report Type: 
  Country: None (occurrence: None)
  Receive Date: 20080327
  Receipt Date: 20080314
  Transmission Date: 20080703
  Serious: Yes (Other)
  Sender: FDA-Public Use
  Company Number: ES-RANBAXY-2008RR-13806

PATIENT

DRUGS (1)
  1. CETIRIZINE RPG 10MG COMPRIME PELLICULE SECABLE [Suspect]
     Indication: RASH
     Dosage: 10 MG, UNK

REACTIONS (1)
  - URTICARIA [None]
